FAERS Safety Report 6133633-5 (Version None)
Quarter: 2009Q1

REPORT INFORMATION
  Report Type: 
  Country: None (occurrence: None)
  Receive Date: 20090326
  Receipt Date: 20090317
  Transmission Date: 20090719
  Serious: Yes (Death)
  Sender: FDA-Public Use
  Company Number: US-JNJFOC-20090305865

PATIENT
  Age: 49 Year
  Sex: Male

DRUGS (4)
  1. ACETAMINOPHEN [Suspect]
  2. ACETAMINOPHEN [Suspect]
     Indication: DRUG ABUSE
  3. HEROIN [Suspect]
     Indication: DRUG ABUSE
  4. UNSPECIFIED NIGHTTIME COLD MEDICATION [Suspect]
     Indication: DRUG ABUSE

REACTIONS (2)
  - MULTIPLE DRUG OVERDOSE [None]
  - SUBSTANCE ABUSE [None]
